FAERS Safety Report 5782934-9 (Version None)
Quarter: 2008Q2

REPORT INFORMATION
  Report Type: 
  Country: None (occurrence: None)
  Receive Date: 20080624
  Receipt Date: 20080620
  Transmission Date: 20081010
  Serious: Yes (Hospitalization)
  Sender: FDA-Public Use
  Company Number: DE-BRISTOL-MYERS SQUIBB COMPANY-14236053

PATIENT
  Age: 45 Year
  Sex: Female
  Weight: 67 kg

DRUGS (9)
  1. PACLITAXEL [Suspect]
     Indication: BREAST CANCER
     Dates: start: 20080514, end: 20080620
  2. CYCLOPHOSPHAMIDE [Suspect]
     Indication: BREAST CANCER
     Dates: start: 20080318, end: 20080430
  3. EPIRUBICIN [Suspect]
     Indication: BREAST CANCER
     Dates: start: 20080318, end: 20080430
  4. CAPECITABINE [Suspect]
     Indication: BREAST CANCER
     Dosage: FREQ: ONCE A DAY FOR TWO WEEKS EVERY THREE WEEKS.
     Dates: start: 20080516, end: 20080620
  5. NEORECORMON [Concomitant]
     Dates: start: 20080318
  6. ONDANSETRON [Concomitant]
     Dosage: FREQ: ONCE FOR ONE TO 4 DAYS EVERY WEEK
     Dates: start: 20080516
  7. DEXAMETHASONE TAB [Concomitant]
     Dosage: FREQ: ONCE FOR ONE TO 4 DAYS EVERY WEEK
     Dates: start: 20080516
  8. CLEMASTINE FUMARATE [Concomitant]
     Dates: start: 20080516
  9. ZANTAC [Concomitant]
     Dates: start: 20080516

REACTIONS (2)
  - FATIGUE [None]
  - PYREXIA [None]
